FAERS Safety Report 5015779-8 (Version None)
Quarter: 2006Q2

REPORT INFORMATION
  Report Type: 
  Country: None (occurrence: None)
  Receive Date: 20060525
  Receipt Date: 20060509
  Transmission Date: 20061013
  Serious: Yes (Disabling)
  Sender: FDA-Public Use
  Company Number: 200604773

PATIENT
  Age: 46 Year
  Sex: Female

DRUGS (7)
  1. DYSPORT (BOTULINUM TOXIN TYPE A) POWDER FOR INJECTION [Suspect]
     Indication: SKIN WRINKLING
     Dosage: 120 UNITS, SINGLE, SUBCUTANEOUS
     Route: 058
     Dates: start: 20060328, end: 20060328
  2. LANTUS [Concomitant]
  3. IBANDRONIC ACID (BANDRONIC ACID) [Concomitant]
  4. CALCIUM (CALCIUM) [Concomitant]
  5. HUMULIN I (INSULIN HUMAN INJECTION, ISOPHANE) [Concomitant]
  6. HUMULIN S (INSULIN HUMAN) [Concomitant]
  7. ALENDRONIC ACID (ALENDRONIC ACID) [Concomitant]

REACTIONS (23)
  - ABDOMINAL PAIN UPPER [None]
  - BLISTER [None]
  - CHROMATURIA [None]
  - DIARRHOEA [None]
  - DIZZINESS [None]
  - DRUG INEFFECTIVE [None]
  - DRY MOUTH [None]
  - ERYTHEMA [None]
  - GASTRIC DISORDER [None]
  - GASTROINTESTINAL TOXICITY [None]
  - HEADACHE [None]
  - HYPERSENSITIVITY [None]
  - IMPAIRED DRIVING ABILITY [None]
  - INFLUENZA LIKE ILLNESS [None]
  - INJECTION SITE PAIN [None]
  - MUSCLE TWITCHING [None]
  - MYALGIA [None]
  - NAUSEA [None]
  - PALPITATIONS [None]
  - RASH ERYTHEMATOUS [None]
  - SKIN LESION [None]
  - TINNITUS [None]
  - URTICARIA [None]
